FAERS Safety Report 5757925-4 (Version None)
Quarter: 2008Q2

REPORT INFORMATION
  Report Type: 
  Country: None (occurrence: None)
  Receive Date: 20080602
  Receipt Date: 20080602
  Transmission Date: 20081010
  Serious: Yes (Other)
  Sender: FDA-Public Use
  Company Number: None

PATIENT
  Sex: Female
  Weight: 61.2356 kg

DRUGS (1)
  1. YASMIN [Suspect]
     Indication: CONTRACEPTION
     Dosage: 21 PILLS / 7 INERT PILLS  EVERY DAY  PO
     Route: 048
     Dates: start: 20060920, end: 20071120

REACTIONS (16)
  - ALOPECIA [None]
  - ARTHRALGIA [None]
  - CRYING [None]
  - DECREASED INTEREST [None]
  - DEPRESSION [None]
  - DIZZINESS [None]
  - DYSPNOEA [None]
  - EDUCATIONAL PROBLEM [None]
  - FATIGUE [None]
  - HEART RATE INCREASED [None]
  - IMPAIRED WORK ABILITY [None]
  - LOSS OF LIBIDO [None]
  - MUSCLE SPASMS [None]
  - PARAESTHESIA [None]
  - PARTNER STRESS [None]
  - PERSONALITY CHANGE [None]
